FAERS Safety Report 16097895 (Version 2)
Quarter: 2019Q3

REPORT INFORMATION
  Report Type: Spontaneous
  Country: US (occurrence: US)
  Receive Date: 20190320
  Receipt Date: 20190923
  Transmission Date: 20191004
  Serious: No
  Sender: FDA-Public Use
  Company Number: US-MYLANLABS-2019M1021843

PATIENT
  Sex: Female
  Weight: 92.52 kg

DRUGS (1)
  1. SPIRONOLACTONE TABLETS, USP [Suspect]
     Active Substance: SPIRONOLACTONE
     Indication: ACNE
     Dosage: 1 DOSAGE FORM
     Route: 048

REACTIONS (5)
  - Urinary tract disorder [Not Recovered/Not Resolved]
  - Muscle spasms [Not Recovered/Not Resolved]
  - Drug ineffective [Recovered/Resolved]
  - Off label use [Unknown]
  - Dehydration [Not Recovered/Not Resolved]
